FAERS Safety Report 7370317-X (Version None)
Quarter: 2011Q1

REPORT INFORMATION
  Report Type: 
  Country: None (occurrence: None)
  Receive Date: 20110323
  Receipt Date: 20110316
  Transmission Date: 20110831
  Serious: Yes (Other)
  Sender: FDA-Public Use
  Company Number: US-US-EMD SERONO, INC.-7000051

PATIENT
  Sex: Female
  Weight: 91 kg

DRUGS (2)
  1. REBIF [Suspect]
     Indication: MULTIPLE SCLEROSIS
     Route: 058
     Dates: start: 20021003
  2. ACIPHEX [Concomitant]
     Indication: GASTROOESOPHAGEAL REFLUX DISEASE
     Route: 048
     Dates: start: 20060101

REACTIONS (6)
  - MALIGNANT MELANOMA [None]
  - EPISTAXIS [None]
  - GAIT DISTURBANCE [None]
  - SMEAR CERVIX ABNORMAL [None]
  - FACIAL BONES FRACTURE [None]
  - FALL [None]
